FAERS Safety Report 5818676-0 (Version None)
Quarter: 2008Q3

REPORT INFORMATION
  Report Type: 
  Country: None (occurrence: None)
  Receive Date: 20080717
  Receipt Date: 20080717
  Transmission Date: 20090109
  Serious: Yes (Life-Threatening, Hospitalization, Other)
  Sender: FDA-Public Use
  Company Number: None

PATIENT
  Sex: Male
  Weight: 102.0593 kg

DRUGS (4)
  1. BYETTA [Suspect]
     Indication: DIABETES MELLITUS
     Dosage: 5 MICRO GMS BID SQ
     Route: 058
     Dates: start: 20060608, end: 20061119
  2. BYETTA [Suspect]
     Indication: OBESITY
     Dosage: 5 MICRO GMS BID SQ
     Route: 058
     Dates: start: 20060608, end: 20061119
  3. BYETTA [Suspect]
     Indication: DIABETES MELLITUS
     Dosage: 10 MICRO GMS BID SQ
     Route: 058
     Dates: start: 20061120, end: 20080207
  4. BYETTA [Suspect]
     Indication: OBESITY
     Dosage: 10 MICRO GMS BID SQ
     Route: 058
     Dates: start: 20061120, end: 20080207

REACTIONS (3)
  - GASTROENTERITIS [None]
  - PANCREATIC NEOPLASM [None]
  - WEIGHT DECREASED [None]
